FAERS Safety Report 8581334-6 (Version None)
Quarter: 2012Q3

REPORT INFORMATION
  Report Type: 
  Country: None (occurrence: None)
  Receive Date: 20120727
  Receipt Date: 20120711
  Transmission Date: 20120928
  Serious: Yes (Death, Life-Threatening, Hospitalization, Other)
  Sender: FDA-Public Use
  Company Number: 2012MA008614

PATIENT
  Age: 26 Year
  Sex: Male

DRUGS (5)
  1. K2/MARIJUANA [Concomitant]
  2. HEROIN [Suspect]
     Dates: end: 20100101
  3. KADIAN [Suspect]
     Dates: end: 20100101
  4. ALPRAZOLAM [Suspect]
     Dates: end: 20100101
  5. AMITRIPTYLINE HCL [Concomitant]

REACTIONS (15)
  - HYPOTENSION [None]
  - FOAMING AT MOUTH [None]
  - BLOOD GLUCOSE INCREASED [None]
  - VISCERAL CONGESTION [None]
  - PULMONARY OEDEMA [None]
  - UNRESPONSIVE TO STIMULI [None]
  - VENTRICULAR TACHYCARDIA [None]
  - DRUG SCREEN POSITIVE [None]
  - DYSPNOEA [None]
  - ALANINE AMINOTRANSFERASE INCREASED [None]
  - DRUG DEPENDENCE [None]
  - INCORRECT DOSE ADMINISTERED [None]
  - LOSS OF CONSCIOUSNESS [None]
  - TOXICITY TO VARIOUS AGENTS [None]
  - CONGESTIVE CARDIOMYOPATHY [None]
